FAERS Safety Report 4775310-9 (Version None)
Quarter: 2005Q3

REPORT INFORMATION
  Report Type: 
  Country: None (occurrence: None)
  Receive Date: 20050914
  Receipt Date: 20050719
  Transmission Date: 20060218
  Serious: Yes (Hospitalization)
  Sender: FDA-Public Use
  Company Number: S05-USA-03626-01

PATIENT
  Age: 43 Year
  Sex: Female

DRUGS (2)
  1. LEXAPRO [Suspect]
     Indication: MIGRAINE
     Dosage: 20 MG QHS PO
     Route: 048
     Dates: start: 20050512
  2. LEXAPRO [Suspect]
     Indication: PREMENSTRUAL SYNDROME
     Dosage: 20 MG QHS PO
     Route: 048
     Dates: start: 20050512

REACTIONS (2)
  - LOSS OF CONSCIOUSNESS [None]
  - ROAD TRAFFIC ACCIDENT [None]
